FAERS Safety Report 4371357-5 (Version None)
Quarter: 2004Q2

REPORT INFORMATION
  Report Type: 
  Country: None (occurrence: None)
  Receive Date: 20040601
  Receipt Date: 20040513
  Transmission Date: 20050107
  Serious: Yes (Hospitalization)
  Sender: FDA-Public Use
  Company Number: 192196

PATIENT
  Sex: Female

DRUGS (11)
  1. AVONEX [Suspect]
     Indication: MULTIPLE SCLEROSIS
     Dosage: 30 MCG QW; IM
     Route: 030
  2. LASIX [Concomitant]
  3. TOPAMAX [Concomitant]
  4. TRAZODONE HCL [Concomitant]
  5. IMITREX [Concomitant]
  6. TRAMADOL HCL [Concomitant]
  7. ZELNORM [Concomitant]
  8. PROTONIX [Concomitant]
  9. PULMONARY INHALERS [Concomitant]
  10. PAXIL [Concomitant]
  11. SOMA [Concomitant]

REACTIONS (4)
  - DRUG INTERACTION [None]
  - HYPOAESTHESIA [None]
  - IRRITABLE BOWEL SYNDROME [None]
  - WEIGHT DECREASED [None]
